FAERS Safety Report 12578850 (Version 1)
Quarter: 2016Q3

REPORT INFORMATION
  Report Type: Spontaneous
  Country: US (occurrence: None)
  Receive Date: 20160720
  Receipt Date: 20160720
  Transmission Date: 20161109
  Serious: No
  Sender: FDA-Public Use
  Company Number: None

PATIENT
  Age: 12 Year
  Sex: Male

DRUGS (1)
  1. NORDITROPIN [Suspect]
     Active Substance: SOMATROPIN
     Indication: HYPOPITUITARISM
     Dosage: 1.2MG 7 DAYS PER WEEK SUBCUTANEOUSLY
     Route: 058
     Dates: start: 20160516

REACTIONS (1)
  - Liquid product physical issue [None]

NARRATIVE: CASE EVENT DATE: 20160627
